FAERS Safety Report 9734919 (Version 1)
Quarter: 2013Q4

REPORT INFORMATION
  Report Type: Spontaneous
  Country: US (occurrence: US)
  Receive Date: 20131206
  Receipt Date: 20131206
  Transmission Date: 20140711
  Serious: No
  Sender: FDA-Public Use
  Company Number: US-PFIZER INC-2013348966

PATIENT
  Age: 47 Year
  Sex: Male

DRUGS (4)
  1. GABAPENTIN [Suspect]
     Dosage: UNK
  2. CODEINE [Suspect]
     Dosage: UNK
  3. DIPHENHYDRAMINE HCL [Suspect]
     Dosage: UNK
  4. COCONUT OIL [Suspect]

REACTIONS (1)
  - Drug hypersensitivity [Unknown]
